FAERS Safety Report 10218741 (Version 1)
Quarter: 2014Q2

REPORT INFORMATION
  Report Type: Spontaneous
  Country: US (occurrence: None)
  Receive Date: 20140604
  Receipt Date: 20140604
  Transmission Date: 20141212
  Serious: Yes (Other)
  Sender: FDA-Public Use
  Company Number: None

PATIENT
  Age: 54 Year
  Sex: Male
  Weight: 65.77 kg

DRUGS (7)
  1. OXYCODONE-APAP [Suspect]
     Indication: PAIN
     Route: 048
     Dates: start: 20140510, end: 20140518
  2. OXYCODONE-APAP [Suspect]
     Indication: NECK INJURY
     Route: 048
     Dates: start: 20140510, end: 20140518
  3. OXYCODONE-APAP [Suspect]
     Indication: SURGERY
     Route: 048
     Dates: start: 20140510, end: 20140518
  4. GABAPENTIN [Concomitant]
  5. PROMETHAZINE [Concomitant]
  6. AMLODIPINE BEYSLATE [Concomitant]
  7. IBUPROFEN [Concomitant]

REACTIONS (2)
  - Malaise [None]
  - Product substitution issue [None]
